FAERS Safety Report 18437762 (Version 4)
Quarter: 2021Q1

REPORT INFORMATION
  Report Type: Report from Study
  Country: FR (occurrence: FR)
  Receive Date: 20201028
  Receipt Date: 20210327
  Transmission Date: 20210419
  Serious: Yes (Death, Hospitalization, Other)
  Sender: FDA-Public Use
  Company Number: FR-BRISTOL-MYERS SQUIBB COMPANY-BMS-2017-011485

PATIENT
  Age: 68 Year
  Sex: Male
  Weight: 69.6 kg

DRUGS (7)
  1. NIVOLUMAB [Suspect]
     Active Substance: NIVOLUMAB
     Indication: LUNG NEOPLASM MALIGNANT
     Dosage: 230 MILLIGRAM, EVERY 15 DAYS
     Route: 042
     Dates: start: 20170111
  2. AMLOR [Concomitant]
     Active Substance: AMLODIPINE BESYLATE
     Indication: HYPERTENSION
     Route: 065
  3. SERETIDE [Concomitant]
     Active Substance: FLUTICASONE PROPIONATE\SALMETEROL XINAFOATE
     Indication: PRODUCT USED FOR UNKNOWN INDICATION
     Route: 065
  4. PULMICORT TURBUHALER [Concomitant]
     Active Substance: BUDESONIDE
     Indication: PRODUCT USED FOR UNKNOWN INDICATION
     Route: 065
  5. ESIDREX [Concomitant]
     Active Substance: HYDROCHLOROTHIAZIDE
     Indication: HYPERTENSION
     Route: 065
  6. DIFFU K [Concomitant]
     Active Substance: POTASSIUM CHLORIDE
     Indication: PRODUCT USED FOR UNKNOWN INDICATION
     Route: 065
  7. SPIRIVA [Concomitant]
     Active Substance: TIOTROPIUM BROMIDE MONOHYDRATE
     Indication: PRODUCT USED FOR UNKNOWN INDICATION
     Route: 065

REACTIONS (10)
  - Escherichia urinary tract infection [Unknown]
  - Anaemia [Unknown]
  - Diabetes mellitus [Not Recovered/Not Resolved]
  - Malignant neoplasm progression [Fatal]
  - Off label use [Unknown]
  - Inflammation [Unknown]
  - Ischaemic stroke [Recovered/Resolved with Sequelae]
  - Hyperleukocytosis [Unknown]
  - Chronic obstructive pulmonary disease [Recovered/Resolved with Sequelae]
  - Hyponatraemia [Unknown]

NARRATIVE: CASE EVENT DATE: 20170118
